FAERS Safety Report 5885828-3 (Version None)
Quarter: 2008Q3

REPORT INFORMATION
  Report Type: 
  Country: None (occurrence: None)
  Receive Date: 20080917
  Receipt Date: 20080911
  Transmission Date: 20090109
  Serious: Yes (Hospitalization)
  Sender: FDA-Public Use
  Company Number: AT-BRISTOL-MYERS SQUIBB COMPANY-14332993

PATIENT
  Age: 44 Year
  Sex: Female
  Weight: 60 kg

DRUGS (6)
  1. ORENCIA [Suspect]
     Indication: RHEUMATOID ARTHRITIS
     Route: 042
     Dates: start: 20080516, end: 20080813
  2. EBETREXAT [Concomitant]
     Route: 058
  3. FOLSAN [Concomitant]
     Route: 048
  4. PREDNISOLONE [Concomitant]
     Dosage: HALF TABLET DAILY
     Route: 048
  5. PARKEMED [Concomitant]
     Route: 048
  6. PANTOPRAZOLE SODIUM [Concomitant]
     Route: 048

REACTIONS (1)
  - HEMIPARESIS [None]
